FAERS Safety Report 7591625-3 (Version None)
Quarter: 2011Q3

REPORT INFORMATION
  Report Type: 
  Country: None (occurrence: None)
  Receive Date: 20110706
  Receipt Date: 20110627
  Transmission Date: 20111222
  Serious: No
  Sender: FDA-Public Use
  Company Number: US-BAYER-201026378NA

PATIENT
  Sex: Female

DRUGS (3)
  1. ANTIBIOTICS [Concomitant]
     Indication: OVARIAN DISORDER
     Dosage: UNK
     Dates: start: 20110401
  2. MIRENA [Suspect]
     Indication: PRODUCT USED FOR UNKNOWN INDICATION
     Dosage: 20 MCG/24HR, CONT
     Route: 015
     Dates: start: 20100423
  3. DIET PILLS [Concomitant]

REACTIONS (8)
  - VOMITING [None]
  - VASCULAR SKIN DISORDER [None]
  - AMENORRHOEA [None]
  - BREAST PAIN [None]
  - MALAISE [None]
  - FATIGUE [None]
  - NAUSEA [None]
  - PREGNANCY WITH CONTRACEPTIVE DEVICE [None]
